FAERS Safety Report 16877270 (Version 1)
Quarter: 2019Q4

REPORT INFORMATION
  Report Type: Spontaneous
  Country: US (occurrence: US)
  Receive Date: 20191002
  Receipt Date: 20191002
  Transmission Date: 20200122
  Serious: Yes (Other)
  Sender: FDA-Public Use
  Company Number: US-ABBVIE-19K-163-2941514-00

PATIENT
  Sex: Female
  Weight: 86.18 kg

DRUGS (3)
  1. DEPAKOTE [Suspect]
     Active Substance: DIVALPROEX SODIUM
     Indication: PRODUCT USED FOR UNKNOWN INDICATION
     Route: 065
  2. LYRICA [Suspect]
     Active Substance: PREGABALIN
     Indication: NEURALGIA
     Dosage: 100MG, 1 CAPSULE BY MOUTH TWICE DAILY
     Route: 048
     Dates: start: 2007
  3. LYRICA [Suspect]
     Active Substance: PREGABALIN
     Indication: MIGRAINE
     Dosage: 100MG, 1 CAPSULE BY MOUTH TWICE DAILY
     Route: 048
     Dates: start: 2010

REACTIONS (10)
  - Therapeutic product effect decreased [Unknown]
  - Diarrhoea [Unknown]
  - Pain [Recovering/Resolving]
  - Neuropathy peripheral [Recovered/Resolved]
  - Migraine [Unknown]
  - Loss of personal independence in daily activities [Recovering/Resolving]
  - Impaired work ability [Recovering/Resolving]
  - Unevaluable event [Unknown]
  - Cerebrovascular accident [Unknown]
  - Vomiting [Unknown]

NARRATIVE: CASE EVENT DATE: 2018
